FAERS Safety Report 9463268 (Version 1)
Quarter: 2013Q3

REPORT INFORMATION
  Report Type: Report from Study
  Country: VE (occurrence: VE)
  Receive Date: 20130819
  Receipt Date: 20130819
  Transmission Date: 20140515
  Serious: Yes (Other)
  Sender: FDA-Public Use
  Company Number: VE-ROCHE-1263137

PATIENT
  Sex: Female
  Weight: 75 kg

DRUGS (1)
  1. MABTHERA [Suspect]
     Indication: RHEUMATOID ARTHRITIS
     Route: 042
     Dates: start: 20090407, end: 20091218

REACTIONS (2)
  - Laryngeal oedema [Unknown]
  - Erythema [Unknown]
